FAERS Safety Report 5406100-1 (Version None)
Quarter: 2007Q3

REPORT INFORMATION
  Report Type: 
  Country: None (occurrence: None)
  Receive Date: 20070806
  Receipt Date: 20070725
  Transmission Date: 20080115
  Serious: Yes (Hospitalization, Disabling, Other)
  Sender: FDA-Public Use
  Company Number: FR-ROCHE-493542

PATIENT
  Age: 15 Year
  Sex: Male
  Weight: 70 kg

DRUGS (2)
  1. ISOTRETINOIN [Suspect]
     Indication: ACNE
     Route: 048
     Dates: start: 20070203, end: 20070306
  2. ISOTRETINOIN [Suspect]
     Route: 048

REACTIONS (4)
  - ACNE FULMINANS [None]
  - DEPRESSION [None]
  - INTERVERTEBRAL DISC PROTRUSION [None]
  - SACROILIITIS [None]
